FAERS Safety Report 25793676 (Version 1)
Quarter: 2025Q3

REPORT INFORMATION
  Report Type: Spontaneous
  Country: EU (occurrence: EU)
  Receive Date: 20250912
  Receipt Date: 20250912
  Transmission Date: 20251020
  Serious: Yes (Other)
  Sender: TEVA
  Company Number: None

PATIENT
  Age: 52 Year
  Sex: Female
  Weight: 95 kg

DRUGS (2)
  1. PACLITAXEL [Suspect]
     Active Substance: PACLITAXEL
     Indication: Ovarian cancer
     Route: 042
     Dates: start: 20210705, end: 20210913
  2. CARBOPLATIN [Suspect]
     Active Substance: CARBOPLATIN
     Indication: Ovarian cancer
     Route: 042
     Dates: start: 20210705, end: 20210913

REACTIONS (2)
  - Neutropenia [Recovering/Resolving]
  - Thrombocytopenia [Recovering/Resolving]
